FAERS Safety Report 21146497 (Version 1)
Quarter: 2022Q3

REPORT INFORMATION
  Report Type: Spontaneous
  Country: GB (occurrence: GB)
  Receive Date: 20220729
  Receipt Date: 20220729
  Transmission Date: 20221027
  Serious: No
  Sender: FDA-Public Use
  Company Number: None

PATIENT
  Age: 43 Year
  Sex: Male

DRUGS (8)
  1. CEFUROXIME AXETIL [Suspect]
     Active Substance: CEFUROXIME AXETIL
     Indication: Product used for unknown indication
     Dosage: 1.5 GRAM
     Route: 065
     Dates: start: 20220207
  2. ATRACURIUM [Concomitant]
     Active Substance: ATRACURIUM
     Indication: Anaesthesia
     Dosage: UNK
     Route: 065
     Dates: start: 20220207, end: 20220207
  3. DIAMORPHINE [Concomitant]
     Active Substance: DIAMORPHINE
     Indication: Anaesthesia
     Dosage: UNK
     Route: 065
     Dates: start: 20220207, end: 20220207
  4. DROPERIDOL [Concomitant]
     Active Substance: DROPERIDOL
     Indication: Anaesthesia
     Dosage: UNK
     Route: 065
     Dates: start: 20220207, end: 20220207
  5. KETOROLAC [Concomitant]
     Active Substance: KETOROLAC TROMETHAMINE
     Indication: Anaesthesia
     Dosage: UNK
     Route: 065
     Dates: start: 20220207, end: 20220207
  6. MIDAZOLAM [Concomitant]
     Active Substance: MIDAZOLAM
     Indication: Anaesthesia
     Dosage: UNK
     Route: 065
     Dates: start: 20220207, end: 20220207
  7. OMEPRAZOLE [Concomitant]
     Active Substance: OMEPRAZOLE
     Indication: Product used for unknown indication
     Dosage: UNK
     Route: 065
     Dates: start: 20220207
  8. ACETAMINOPHEN [Concomitant]
     Active Substance: ACETAMINOPHEN
     Indication: Anaesthesia
     Dosage: UNK
     Route: 065
     Dates: start: 20220207, end: 20220207

REACTIONS (1)
  - Pruritus [Recovering/Resolving]

NARRATIVE: CASE EVENT DATE: 20220207
